FAERS Safety Report 22014928 (Version 1)
Quarter: 2023Q1

REPORT INFORMATION
  Report Type: Spontaneous
  Country: ES (occurrence: ES)
  Receive Date: 20230221
  Receipt Date: 20230221
  Transmission Date: 20230418
  Serious: Yes (Other)
  Sender: FDA-Public Use
  Company Number: ES-009507513-2302ESP006557

PATIENT

DRUGS (1)
  1. LETERMOVIR [Suspect]
     Active Substance: LETERMOVIR
     Indication: Prophylaxis
     Dosage: STARTED ON DAY 0 AND MAINTAINED UP TO DAY +100
     Route: 048

REACTIONS (1)
  - Cytomegalovirus infection reactivation [Unknown]
